FAERS Safety Report 8216654-8 (Version None)
Quarter: 2012Q1

REPORT INFORMATION
  Report Type: 
  Country: None (occurrence: None)
  Receive Date: 20120316
  Receipt Date: 20120314
  Transmission Date: 20120608
  Serious: Yes (Death)
  Sender: FDA-Public Use
  Company Number: US-MEDIMMUNE-MEDI-0015145

PATIENT
  Sex: Male

DRUGS (8)
  1. ENALAPRIL [Concomitant]
  2. URSODIOL [Concomitant]
  3. SYNAGIS [Suspect]
     Indication: VENTRICULAR SEPTAL DEFECT
     Route: 030
     Dates: start: 20120201, end: 20120306
  4. SYNAGIS [Suspect]
     Indication: TRACHEO-OESOPHAGEAL FISTULA
  5. SYNAGIS [Suspect]
     Indication: PREMATURE BABY
  6. POLY-VI-FLOR [Concomitant]
  7. LASIX [Concomitant]
  8. ZANTAC [Concomitant]

REACTIONS (1)
  - DEATH [None]
